FAERS Safety Report 6109277-8 (Version None)
Quarter: 2009Q1

REPORT INFORMATION
  Report Type: 
  Country: None (occurrence: None)
  Receive Date: 20090306
  Receipt Date: 20090221
  Transmission Date: 20090719
  Serious: No
  Sender: FDA-Public Use
  Company Number: 2008-181835-NL

PATIENT
  Age: 46 Year
  Sex: Female

DRUGS (1)
  1. ETONOGESTREL (BATCH # : 101840/167082) [Suspect]
     Indication: CONTRACEPTION
     Dosage: DF SUBCUTANEOUS
     Route: 058
     Dates: start: 20070528, end: 20090216

REACTIONS (3)
  - DEVICE MIGRATION [None]
  - OVARIAN CYST [None]
  - UTERINE LEIOMYOMA [None]
